FAERS Safety Report 9393666 (Version 2)
Quarter: 2013Q3

REPORT INFORMATION
  Report Type: Spontaneous
  Country: JP (occurrence: JP)
  Receive Date: 20130710
  Receipt Date: 20130723
  Transmission Date: 20140515
  Serious: Yes (Other)
  Sender: FDA-Public Use
  Company Number: JP-GLAXOSMITHKLINE-B0906147A

PATIENT
  Age: 42 Year
  Sex: Female

DRUGS (12)
  1. LAMICTAL [Suspect]
     Indication: BIPOLAR DISORDER
     Route: 048
     Dates: start: 20121031, end: 201211
  2. LAMICTAL [Suspect]
     Indication: BIPOLAR DISORDER
     Route: 048
     Dates: start: 20121114, end: 201211
  3. LAMICTAL [Suspect]
     Indication: BIPOLAR DISORDER
     Route: 048
     Dates: start: 20121128, end: 201212
  4. LAMICTAL [Suspect]
     Indication: BIPOLAR DISORDER
     Route: 048
     Dates: start: 20121212, end: 201212
  5. LAMICTAL [Suspect]
     Indication: BIPOLAR DISORDER
     Route: 048
     Dates: start: 20121225, end: 201301
  6. LAMICTAL [Suspect]
     Indication: BIPOLAR DISORDER
     Route: 048
     Dates: start: 20130109, end: 201301
  7. LAMICTAL [Suspect]
     Indication: BIPOLAR DISORDER
     Route: 048
     Dates: start: 20130123, end: 201303
  8. LAMICTAL [Suspect]
     Indication: BIPOLAR DISORDER
     Route: 048
     Dates: start: 20130327, end: 201306
  9. LAMICTAL [Suspect]
     Indication: BIPOLAR DISORDER
     Route: 048
     Dates: start: 20130619, end: 20130703
  10. TEGRETOL [Suspect]
     Indication: BIPOLAR DISORDER
     Route: 048
  11. UNKNOWN DRUG [Concomitant]
     Indication: BIPOLAR DISORDER
     Route: 048
  12. QUETIAPINE [Concomitant]
     Indication: BIPOLAR DISORDER
     Route: 048

REACTIONS (7)
  - Blindness transient [Recovered/Resolved]
  - Blindness transient [Recovered/Resolved]
  - Vision blurred [Recovered/Resolved]
  - Diplopia [Recovered/Resolved]
  - Diplopia [Recovered/Resolved]
  - Vision blurred [Recovered/Resolved]
  - Diplopia [Recovered/Resolved]
